FAERS Safety Report 8484423 (Version 9)
Quarter: 2014Q1

REPORT INFORMATION
  Report Type: Report from Study
  Country: DE (occurrence: DE)
  Receive Date: 20120330
  Receipt Date: 20140102
  Transmission Date: 20141002
  Serious: Yes (Hospitalization)
  Sender: FDA-Public Use
  Company Number: DE-UCBSA-054025

PATIENT
  Sex: Male
  Weight: 76 kg

DRUGS (16)
  1. CIMZIA [Suspect]
     Indication: RHEUMATOID ARTHRITIS
     Dosage: NO. OF DOSES RECEIVED: 13
     Route: 058
     Dates: start: 20111202, end: 20131105
  2. RITUXIMAB [Suspect]
     Dosage: DOSE: 1000 MG
     Dates: start: 20110505
  3. MTX [Suspect]
     Indication: RHEUMATOID ARTHRITIS
     Dosage: 20MG QS(SUFFICIENT QUANTITY)
     Route: 048
     Dates: start: 20080715, end: 20120904
  4. MTX [Suspect]
     Indication: RHEUMATOID ARTHRITIS
     Dosage: 20MG/W
     Dates: start: 201108
  5. PREDNISOLONE [Concomitant]
     Indication: RHEUMATOID ARTHRITIS
     Route: 048
     Dates: start: 20070911, end: 20120227
  6. PREDNISOLONE [Concomitant]
     Indication: RHEUMATOID ARTHRITIS
     Dates: start: 20120228, end: 20120325
  7. PREDNISOLONE [Concomitant]
     Indication: RHEUMATOID ARTHRITIS
     Dates: start: 20130219, end: 20130709
  8. PREDNISOLONE [Concomitant]
     Indication: RHEUMATOID ARTHRITIS
     Dates: start: 20130710
  9. CALCIUM [Concomitant]
     Indication: OSTEOPOROSIS
     Dosage: DALIY DOSE 1000 MG
     Route: 048
     Dates: start: 20080715
  10. RAMIPRIL [Concomitant]
     Indication: HYPERTENSION
     Route: 048
     Dates: start: 20070911
  11. PANTOZOL [Concomitant]
     Indication: GASTRITIS PROPHYLAXIS
     Route: 048
     Dates: start: 20101221
  12. ACETYL SALICYL ACID [Concomitant]
     Route: 048
     Dates: start: 201202
  13. VIT D3 [Concomitant]
     Indication: OSTEOPOROSIS PROPHYLAXIS
     Dates: start: 20080715
  14. FOLIC ACID [Concomitant]
     Indication: RHEUMATOID ARTHRITIS
     Dosage: QS
     Dates: start: 20080715
  15. OMEPRAZOLE [Concomitant]
     Indication: GASTRIC DISORDER
     Dates: start: 20101221
  16. IBUPROFEN [Concomitant]
     Indication: RHEUMATOID ARTHRITIS
     Dates: start: 20080715

REACTIONS (5)
  - Large intestine perforation [Recovered/Resolved]
  - Peritonitis [Recovered/Resolved]
  - Gastrointestinal haemorrhage [Recovered/Resolved]
  - Polypectomy [Recovered/Resolved]
  - Colonoscopy [Recovered/Resolved]
